FAERS Safety Report 4520270-9 (Version None)
Quarter: 2005Q1

REPORT INFORMATION
  Report Type: 
  Country: None (occurrence: None)
  Receive Date: 20041026
  Receipt Date: 20031015
  Transmission Date: 20050727
  Serious: Yes (Other)
  Sender: FDA-Public Use
  Company Number: 03C288

PATIENT
  Sex: Male
  Weight: 72.5755 kg

DRUGS (2)
  1. CLINDA MAX GEL (CLINDAMYCIN PHOSPHAGE GEL) [Suspect]
     Indication: ACNE
     Dosage: DAILY TOPICAL
     Route: 061
  2. LOKARA LOTION [Concomitant]

REACTIONS (2)
  - ERYTHEMA [None]
  - SKIN EXFOLIATION [None]
